FAERS Safety Report 22213762 (Version 1)
Quarter: 2023Q2

REPORT INFORMATION
  Report Type: Spontaneous
  Country: US (occurrence: None)
  Receive Date: 20230414
  Receipt Date: 20230414
  Transmission Date: 20230721
  Serious: Yes (Other)
  Sender: FDA-Public Use
  Company Number: None

PATIENT
  Age: 57 Year
  Sex: Female
  Weight: 78.93 kg

DRUGS (1)
  1. BUPROPION [Suspect]
     Active Substance: BUPROPION
     Indication: Depression
     Dates: start: 2011

REACTIONS (7)
  - Anger [None]
  - Aggression [None]
  - Hostility [None]
  - Agitation [None]
  - Thinking abnormal [None]
  - Product substitution issue [None]
  - Therapeutic response increased [None]

NARRATIVE: CASE EVENT DATE: 20110101
